FAERS Safety Report 22237525 (Version 1)
Quarter: 2023Q2

REPORT INFORMATION
  Report Type: Spontaneous
  Country: EG (occurrence: EG)
  Receive Date: 20230421
  Receipt Date: 20230421
  Transmission Date: 20230721
  Serious: Yes (Other)
  Sender: FDA-Public Use
  Company Number: EG-NOVOPROD-1051061

PATIENT
  Sex: Female

DRUGS (1)
  1. NOVORAPID [Suspect]
     Active Substance: INSULIN ASPART
     Indication: Product used for unknown indication
     Dosage: UNK
     Dates: start: 2022

REACTIONS (1)
  - Cataract operation [Unknown]

NARRATIVE: CASE EVENT DATE: 20220101
